FAERS Safety Report 10621261 (Version 1)
Quarter: 2014Q4

REPORT INFORMATION
  Report Type: Spontaneous
  Country: GB (occurrence: GB)
  Receive Date: 20141203
  Receipt Date: 20141203
  Transmission Date: 20150529
  Serious: Yes (Death, Hospitalization, Disabling, Other)
  Sender: FDA-Public Use
  Company Number: GB-ACCORD-027347

PATIENT
  Age: 72 Year
  Sex: Female
  Weight: 66 kg

DRUGS (3)
  1. IRON [Concomitant]
     Active Substance: IRON
  2. ANASTROZOLE. [Concomitant]
     Active Substance: ANASTROZOLE
  3. DONEPEZIL/DONEPEZIL HYDROCHLORIDE [Suspect]
     Active Substance: DONEPEZIL HYDROCHLORIDE
     Indication: DEMENTIA ALZHEIMER^S TYPE
     Route: 048
     Dates: start: 20140822, end: 20141003

REACTIONS (4)
  - Hepatitis acute [Unknown]
  - Multi-organ failure [Unknown]
  - Urinary tract infection [Unknown]
  - Sepsis [Fatal]

NARRATIVE: CASE EVENT DATE: 20140903
